FAERS Safety Report 14969774 (Version 1)
Quarter: 2018Q2

REPORT INFORMATION
  Report Type: Spontaneous
  Country: US (occurrence: US)
  Receive Date: 20180604
  Receipt Date: 20180604
  Transmission Date: 20180711
  Serious: No
  Sender: FDA-Public Use
  Company Number: US-TEVA-2018-US-900302

PATIENT
  Age: 95 Year
  Sex: Female

DRUGS (4)
  1. VALSARTAN. [Concomitant]
     Active Substance: VALSARTAN
  2. METOPROLOL ER [Suspect]
     Active Substance: METOPROLOL SUCCINATE
     Indication: TREMOR
     Route: 065
     Dates: start: 201802, end: 201804
  3. HYDROCHLOROTHIAZIDE. [Concomitant]
     Active Substance: HYDROCHLOROTHIAZIDE
     Dosage: TAKES SOMETIMES BUT NOT EVERY DAY
  4. LORAZEPAM. [Concomitant]
     Active Substance: LORAZEPAM
     Indication: STRESS

REACTIONS (3)
  - Product label confusion [Unknown]
  - Tremor [Unknown]
  - Frequent bowel movements [Unknown]

NARRATIVE: CASE EVENT DATE: 201802
